FAERS Safety Report 18439306 (Version 1)
Quarter: 2020Q4

REPORT INFORMATION
  Report Type: Spontaneous
  Country: GB (occurrence: GB)
  Receive Date: 20201028
  Receipt Date: 20201028
  Transmission Date: 20210114
  Serious: Yes (Life-Threatening, Hospitalization)
  Sender: FDA-Public Use
  Company Number: GB-009507513-2010GBR010408

PATIENT
  Age: 73 Year
  Sex: Female
  Weight: 64.2 kg

DRUGS (15)
  1. DAPTOMYCIN. [Suspect]
     Active Substance: DAPTOMYCIN
     Indication: ENDOCARDITIS
     Dosage: (8MG/KG)
     Route: 042
     Dates: start: 20200925, end: 20201001
  2. DIAZEPAM. [Concomitant]
     Active Substance: DIAZEPAM
  3. RIFAMPIN. [Suspect]
     Active Substance: RIFAMPIN
     Indication: ENDOCARDITIS
     Route: 042
     Dates: start: 20200926, end: 20200930
  4. ACETAMINOPHEN. [Concomitant]
     Active Substance: ACETAMINOPHEN
  5. BIOTENE DRY MOUTH ORAL RINSE [Concomitant]
     Active Substance: CETYLPYRIDINIUM CHLORIDE
  6. FLOXACILLIN [Concomitant]
     Active Substance: FLUCLOXACILLIN
  7. DALTEPARIN SODIUM [Concomitant]
     Active Substance: DALTEPARIN SODIUM
  8. ASPIRIN. [Concomitant]
     Active Substance: ASPIRIN
  9. BISOPROLOL FUMARATE. [Concomitant]
     Active Substance: BISOPROLOL FUMARATE
  10. SANDO-K [Concomitant]
  11. LORAZEPAM. [Concomitant]
     Active Substance: LORAZEPAM
  12. GABAPENTIN. [Concomitant]
     Active Substance: GABAPENTIN
  13. RIFAMPIN. [Suspect]
     Active Substance: RIFAMPIN
     Indication: ENDOCARDITIS
     Dosage: TWICE A DAY WAS ORALLY UNTIL 25/9 THEN SWITCHED TO INTRAVENOUS (IV)
     Route: 048
     Dates: start: 20200904, end: 20200925
  14. TRIMETHOPRIM. [Concomitant]
     Active Substance: TRIMETHOPRIM
  15. POLYETHYLENE GLYCOL 3350. [Concomitant]
     Active Substance: POLYETHYLENE GLYCOL 3350

REACTIONS (1)
  - Myocarditis [Recovering/Resolving]

NARRATIVE: CASE EVENT DATE: 20201001
